FAERS Safety Report 6832076-6 (Version None)
Quarter: 2010Q3

REPORT INFORMATION
  Report Type: 
  Country: None (occurrence: None)
  Receive Date: 20100712
  Receipt Date: 20100706
  Transmission Date: 20110219
  Serious: Yes (Other)
  Sender: FDA-Public Use
  Company Number: CH-ROCHE-713726

PATIENT
  Age: 32 Year
  Sex: Male

DRUGS (1)
  1. RIVOTRIL [Suspect]
     Indication: AUTISM
     Route: 065

REACTIONS (1)
  - BRUGADA SYNDROME [None]
